FAERS Safety Report 9879335 (Version 5)
Quarter: 2014Q2

REPORT INFORMATION
  Report Type: Spontaneous
  Country: US (occurrence: US)
  Receive Date: 20140206
  Receipt Date: 20140415
  Transmission Date: 20141212
  Serious: Yes (Disabling, Other)
  Sender: FDA-Public Use
  Company Number: US-GE HEALTHCARE MEDICAL DIAGNOSTICS-OSCN-PR-1401S-0007

PATIENT
  Age: 54 Year
  Sex: Female

DRUGS (37)
  1. OMNISCAN [Suspect]
     Indication: RENAL CYST
     Dosage: DOSE NOT REPORTED
     Route: 065
     Dates: start: 20030506, end: 20030506
  2. OMNISCAN [Suspect]
     Indication: ADRENAL MASS
     Route: 065
     Dates: start: 20040106, end: 20040106
  3. OMNISCAN [Suspect]
     Indication: DIAGNOSTIC PROCEDURE
     Route: 065
     Dates: start: 20050202, end: 20050202
  4. OMNISCAN [Suspect]
     Indication: PRODUCT USED FOR UNKNOWN INDICATION
     Route: 065
     Dates: start: 20050206, end: 20050206
  5. OMNISCAN [Suspect]
     Indication: DIAGNOSTIC PROCEDURE
  6. OMNISCAN [Suspect]
     Indication: HYPERTENSION
  7. OMNISCAN [Suspect]
     Indication: HYPERGLYCAEMIA
  8. OMNISCAN [Suspect]
     Indication: PERIPHERAL VASCULAR DISORDER
  9. OMNISCAN [Suspect]
     Indication: PEDAL PULSE DECREASED
  10. OMNISCAN [Suspect]
     Indication: RENAL FAILURE
  11. OMNISCAN [Suspect]
     Indication: VOMITING
  12. OMNISCAN [Suspect]
     Indication: PYREXIA
  13. OPTIMARK [Suspect]
     Indication: HYPERTENSION
     Route: 065
     Dates: start: 20061111, end: 20061111
  14. OPTIMARK [Suspect]
     Indication: ASTHENIA
  15. OPTIMARK [Suspect]
     Indication: CONFUSIONAL STATE
  16. MAGNEVIST [Suspect]
     Dosage: DOSE NOT REPORTED
     Route: 065
     Dates: start: 20031204, end: 20031204
  17. ISOVUE [Suspect]
     Indication: PYREXIA
     Route: 065
     Dates: start: 20090405, end: 20090405
  18. ISOVUE [Suspect]
     Indication: DIAGNOSTIC PROCEDURE
  19. XARELTO [Concomitant]
     Dates: end: 2012
  20. PREDNISONE [Concomitant]
     Indication: TEMPORAL ARTERITIS
     Dates: start: 2003, end: 2013
  21. PREDNISONE [Concomitant]
     Indication: TEMPORAL ARTERITIS
  22. NEURONTIN [Concomitant]
  23. PAXIL [Concomitant]
     Indication: DEPRESSION
  24. DARVOCET-N [Concomitant]
     Indication: OSTEOARTHRITIS
  25. COUMADIN [Concomitant]
     Dates: end: 2013
  26. LANTUS [Concomitant]
     Indication: DIABETES MELLITUS
     Dates: start: 2003, end: 2013
  27. HUMALOG [Concomitant]
     Indication: DIABETES MELLITUS
     Dates: start: 2003, end: 2013
  28. LIPITOR [Concomitant]
     Dates: end: 2013
  29. METOPROLOL [Concomitant]
     Dates: start: 2007, end: 2013
  30. LASIX [Concomitant]
     Dates: start: 2004, end: 2013
  31. RAPAMUNE [Concomitant]
     Dates: start: 2007, end: 2013
  32. NEORAL [Concomitant]
     Dates: start: 2007, end: 2013
  33. NORCO [Concomitant]
     Indication: PAIN
     Dates: start: 2012, end: 2013
  34. ASPIRIN [Concomitant]
     Dates: start: 2003, end: 2013
  35. BACTRIM [Concomitant]
     Dates: start: 2007, end: 2013
  36. MULTIVITAMIN [Concomitant]
     Dates: start: 2007, end: 2013
  37. OPTIMARK [Concomitant]
     Indication: ANAEMIA
     Dates: start: 2007, end: 2013

REACTIONS (6)
  - Scleroderma [Not Recovered/Not Resolved]
  - Mobility decreased [Not Recovered/Not Resolved]
  - Discomfort [Not Recovered/Not Resolved]
  - Nephrogenic systemic fibrosis [Unknown]
  - Myalgia [Not Recovered/Not Resolved]
  - Arthralgia [Not Recovered/Not Resolved]
